FAERS Safety Report 22033265 (Version 1)
Quarter: 2023Q1

REPORT INFORMATION
  Report Type: Report from Study
  Country: US (occurrence: None)
  Receive Date: 20230224
  Receipt Date: 20230224
  Transmission Date: 20230418
  Serious: Yes (Hospitalization)
  Sender: FDA-Public Use
  Company Number: US-Merck Healthcare KGaA-9384516

PATIENT
  Sex: Female

DRUGS (3)
  1. MAVENCLAD [Suspect]
     Active Substance: CLADRIBINE
     Indication: Multiple sclerosis
     Dosage: YEAR ONE MONTH ONE THERAPY
     Route: 048
     Dates: start: 20210210, end: 20210214
  2. MAVENCLAD [Suspect]
     Active Substance: CLADRIBINE
     Dosage: YEAR ONE MONTH TWO THERAPY
     Route: 048
     Dates: start: 20210317, end: 20210321
  3. INSULIN NOS [Suspect]
     Active Substance: INSULIN NOS
     Indication: Diabetes mellitus
     Dosage: INSULIN PUMP

REACTIONS (5)
  - Blood pressure decreased [Recovering/Resolving]
  - Herpes zoster [Recovering/Resolving]
  - Blood glucose increased [Recovering/Resolving]
  - Blood glucose decreased [Recovering/Resolving]
  - Post herpetic neuralgia [Not Recovered/Not Resolved]
